FAERS Safety Report 4451901-X (Version None)
Quarter: 2004Q3

REPORT INFORMATION
  Report Type: 
  Country: None (occurrence: None)
  Receive Date: 20040917
  Receipt Date: 20040907
  Transmission Date: 20050211
  Serious: Yes (Death)
  Sender: FDA-Public Use
  Company Number: GB-JNJFOC-20040607204

PATIENT
  Sex: Female

DRUGS (12)
  1. REMICADE [Suspect]
     Route: 042
  2. THYROXINE [Concomitant]
  3. METHOTREXATE [Concomitant]
  4. FOLIC ACID [Concomitant]
  5. ETODOLAC [Concomitant]
  6. PREDNISOLONE [Concomitant]
  7. CALCICHEW [Concomitant]
  8. ALENDRONATE SODIUM [Concomitant]
  9. ATENOLOL [Concomitant]
  10. RIFAMPIN AND ISONIAZID [Concomitant]
  11. RIFAMPIN AND ISONIAZID [Concomitant]
  12. RANITIDINE [Concomitant]

REACTIONS (4)
  - METASTASES TO SPINE [None]
  - NON-SMALL CELL LUNG CANCER [None]
  - SPINAL CORD COMPRESSION [None]
  - SQUAMOUS CELL CARCINOMA [None]
